FAERS Safety Report 14070076 (Version 1)
Quarter: 2017Q4

REPORT INFORMATION
  Report Type: Spontaneous
  Country: US (occurrence: None)
  Receive Date: 20171010
  Receipt Date: 20171010
  Transmission Date: 20180321
  Serious: No
  Sender: FDA-Public Use
  Company Number: None

PATIENT

DRUGS (3)
  1. EXPAREL [Suspect]
     Active Substance: BUPIVACAINE
  2. CLEVIDIPINE BUTYRATE [Suspect]
     Active Substance: CLEVIDIPINE
  3. PROPOFOL. [Suspect]
     Active Substance: PROPOFOL

REACTIONS (1)
  - Product packaging confusion [None]
